FAERS Safety Report 4697868-0 (Version None)
Quarter: 2005Q2

REPORT INFORMATION
  Report Type: 
  Country: None (occurrence: None)
  Receive Date: 20050623
  Receipt Date: 20050609
  Transmission Date: 20051028
  Serious: Yes (Hospitalization)
  Sender: FDA-Public Use
  Company Number: 200511523EU

PATIENT
  Age: 78 Year
  Sex: Male

DRUGS (10)
  1. LASIX [Suspect]
     Route: 048
     Dates: end: 20050506
  2. ARTHROTEC [Suspect]
     Dosage: DOSE: 75/0.2
     Route: 048
     Dates: end: 20050506
  3. ASPIRIN [Suspect]
     Route: 048
  4. RENITEN                            /00574902/ [Suspect]
     Route: 048
     Dates: end: 20050506
  5. ALDACTONE [Suspect]
     Route: 048
     Dates: end: 20050506
  6. DEPAKENE [Concomitant]
     Route: 048
  7. EFFEXOR [Concomitant]
     Route: 048
  8. NOVOTHYRAL [Concomitant]
     Route: 048
  9. TEMESTA [Concomitant]
     Route: 048
  10. NOVONORM [Concomitant]
     Route: 048

REACTIONS (5)
  - FALL [None]
  - HYPERKALAEMIA [None]
  - RENAL FAILURE ACUTE [None]
  - SOFT TISSUE DISORDER [None]
  - SOMNOLENCE [None]
